FAERS Safety Report 25763907 (Version 1)
Quarter: 2025Q3

REPORT INFORMATION
  Report Type: Spontaneous
  Country: US (occurrence: US)
  Receive Date: 20250905
  Receipt Date: 20250905
  Transmission Date: 20251021
  Serious: No
  Sender: DOMPE FARMACEUTICI
  Company Number: US-FARMAPROD-202411-3886

PATIENT
  Age: 79 Year
  Sex: Female

DRUGS (17)
  1. OXERVATE [Suspect]
     Active Substance: CENEGERMIN-BKBJ
     Indication: Neurotrophic keratopathy
     Route: 047
     Dates: start: 20220125, end: 20220322
  2. OXERVATE [Suspect]
     Active Substance: CENEGERMIN-BKBJ
     Route: 047
     Dates: start: 20241107
  3. OMEGA-3-FISH OIL-VIT D3 [Concomitant]
  4. VISION FORMULA [Concomitant]
  5. VITAMIN C [Concomitant]
     Active Substance: ASCORBIC ACID
  6. MULTIVITAMIN 50 PLUS [Concomitant]
  7. ASPIRIN [Concomitant]
     Active Substance: ASPIRIN
  8. MAGNESIUM [Concomitant]
     Active Substance: MAGNESIUM
  9. AMLODIPINE BESYLATE [Concomitant]
     Active Substance: AMLODIPINE BESYLATE
  10. DOXYCYCLINE HYCLATE [Concomitant]
     Active Substance: DOXYCYCLINE HYCLATE
  11. LEVOTHYROXINE [Concomitant]
     Active Substance: LEVOTHYROXINE
  12. LISINOPRIL [Concomitant]
     Active Substance: LISINOPRIL
  13. PREDNISOLONE [Concomitant]
     Active Substance: PREDNISOLONE
  14. REFRESH DIGITAL PF [Concomitant]
     Active Substance: CARBOXYMETHYLCELLULOSE SODIUM\GLYCERIN\POLYSORBATE 80
  15. REFRESH CELLUVISC [Concomitant]
     Active Substance: CARBOXYMETHYLCELLULOSE SODIUM
  16. RESTASIS [Concomitant]
     Active Substance: CYCLOSPORINE
  17. REGENER EYES [Concomitant]

REACTIONS (6)
  - Eye inflammation [Unknown]
  - Ocular hyperaemia [Unknown]
  - Eye pain [Unknown]
  - Product dose omission issue [Unknown]
  - Ocular discomfort [Unknown]
  - Eyelid irritation [Unknown]

NARRATIVE: CASE EVENT DATE: 20241107
